FAERS Safety Report 17500188 (Version 6)
Quarter: 2021Q3

REPORT INFORMATION
  Report Type: Spontaneous
  Country: US (occurrence: US)
  Receive Date: 20200305
  Receipt Date: 20210819
  Transmission Date: 20211014
  Serious: Yes (Death, Hospitalization)
  Sender: FDA-Public Use
  Company Number: US-ROCHE-2559597

PATIENT
  Age: 89 Year
  Sex: Female
  Weight: 69.9 kg

DRUGS (9)
  1. ESTRADIOL. [Concomitant]
     Active Substance: ESTRADIOL
     Dosage: VAGINAL INSERTION, 2 MG EVERY 3 MONTHS
     Route: 067
  2. LACTOBACILLUS [Concomitant]
     Active Substance: LACTOBACILLUS ACIDOPHILUS
  3. CRANBERRY EXTRACT [Concomitant]
     Active Substance: CRANBERRY
  4. VITAMIN D [Concomitant]
     Active Substance: VITAMIN D NOS
  5. ACTIVASE [Suspect]
     Active Substance: ALTEPLASE
     Route: 040
     Dates: start: 20200227
  6. ALENDRONATE [Concomitant]
     Active Substance: ALENDRONATE SODIUM
     Indication: OSTEOPOROSIS
  7. DICLOFENAC [Concomitant]
     Active Substance: DICLOFENAC
     Indication: ARTHRITIS
     Dosage: APPLY TOPICALLY TO ARTHRITIC AREAS, AND BACK
     Route: 061
     Dates: start: 20200129
  8. ATORVASTATIN [Concomitant]
     Active Substance: ATORVASTATIN
     Indication: BLOOD CHOLESTEROL INCREASED
     Dosage: ONGOING? YES
     Dates: start: 20200130
  9. ACTIVASE [Suspect]
     Active Substance: ALTEPLASE
     Indication: ISCHAEMIC STROKE
     Dosage: ONGOING? NO
     Route: 040
     Dates: start: 20200227, end: 20200227

REACTIONS (10)
  - Mental status changes [Not Recovered/Not Resolved]
  - Hypertension [Unknown]
  - Bradycardia [Unknown]
  - Dyspnoea [Not Recovered/Not Resolved]
  - Haemorrhagic transformation stroke [Fatal]
  - Ill-defined disorder [Not Recovered/Not Resolved]
  - Speech disorder [Not Recovered/Not Resolved]
  - Loss of consciousness [Not Recovered/Not Resolved]
  - Haemorrhagic transformation stroke [Not Recovered/Not Resolved]
  - Product quality issue [Unknown]

NARRATIVE: CASE EVENT DATE: 20200227
